FAERS Safety Report 8369397-4 (Version None)
Quarter: 2012Q2

REPORT INFORMATION
  Report Type: 
  Country: None (occurrence: None)
  Receive Date: 20120518
  Receipt Date: 20120509
  Transmission Date: 20120825
  Serious: Yes (Hospitalization)
  Sender: FDA-Public Use
  Company Number: FR-JNJFOC-20120513547

PATIENT
  Sex: Male

DRUGS (5)
  1. XARELTO [Suspect]
     Indication: THROMBOSIS PROPHYLAXIS
     Route: 048
     Dates: start: 20120316, end: 20120331
  2. ASPIRIN [Suspect]
     Indication: PROPHYLAXIS
     Dates: start: 20110101
  3. ROVAMYCINE [Suspect]
     Indication: BRONCHITIS
     Route: 048
     Dates: start: 20120326, end: 20120404
  4. XARELTO [Suspect]
     Indication: HIP ARTHROPLASTY
     Route: 048
     Dates: start: 20120316, end: 20120331
  5. ACETAMINOPHEN [Suspect]
     Indication: ILL-DEFINED DISORDER

REACTIONS (1)
  - CHEST DISCOMFORT [None]
